FAERS Safety Report 6128994-7 (Version None)
Quarter: 2009Q1

REPORT INFORMATION
  Report Type: 
  Country: None (occurrence: None)
  Receive Date: 20090324
  Receipt Date: 20090313
  Transmission Date: 20090719
  Serious: Yes (Other)
  Sender: FDA-Public Use
  Company Number: PHHY2009CR09592

PATIENT
  Age: 61 Year
  Sex: Female

DRUGS (6)
  1. CATAFLAM [Suspect]
     Indication: SKIN ULCER
     Dosage: 50 MG, UNK
     Route: 048
     Dates: start: 20070101
  2. CATAFLAM [Suspect]
     Indication: ARTHROPOD STING
  3. CATAFLAM [Suspect]
     Indication: ANALGESIA
  4. IBERSARTAN [Concomitant]
     Dosage: 150 MG PER DAY
     Route: 048
  5. LEVOTIROXINA [Concomitant]
     Dosage: 100 UG, ONE AND A HALF TABLET PER DAY
     Route: 048
  6. LOVASTATIN [Concomitant]
     Dosage: 20 MG PER DAY
     Route: 048

REACTIONS (1)
  - BASAL CELL CARCINOMA [None]
